FAERS Safety Report 20655351 (Version 3)
Quarter: 2022Q3

REPORT INFORMATION
  Report Type: Other
  Country: CA (occurrence: CA)
  Receive Date: 20220330
  Receipt Date: 20220826
  Transmission Date: 20221027
  Serious: Yes (Other)
  Sender: FDA-Public Use
  Company Number: CA-002147023-NVSC2022CA034184

PATIENT
  Age: 70 Year
  Sex: Female

DRUGS (3)
  1. XOLAIR [Suspect]
     Active Substance: OMALIZUMAB
     Indication: Chronic spontaneous urticaria
     Dosage: 300 MG, EVERY 4 WEEKS
     Route: 058
     Dates: start: 20220210
  2. BILASTINE [Concomitant]
     Active Substance: BILASTINE
     Indication: Product used for unknown indication
     Dosage: 1 DOSAGE FORM, QD
     Route: 048
     Dates: start: 20211022
  3. SINGULAIR [Concomitant]
     Active Substance: MONTELUKAST SODIUM
     Indication: Product used for unknown indication
     Dosage: UNK, QD
     Route: 048
     Dates: start: 20211010

REACTIONS (3)
  - Blood pressure increased [Unknown]
  - Anxiety [Unknown]
  - Urticaria [Unknown]

NARRATIVE: CASE EVENT DATE: 20220210
